FAERS Safety Report 25546096 (Version 1)
Quarter: 2025Q3

REPORT INFORMATION
  Report Type: Report from Study
  Country: CA (occurrence: CA)
  Receive Date: 20250712
  Receipt Date: 20250712
  Transmission Date: 20251021
  Serious: Yes (Other)
  Sender: DR REDDYS
  Company Number: CA-DRL-USA-CAN/2025/07/010116

PATIENT
  Age: 55 Year
  Sex: Female

DRUGS (2)
  1. ZOLEDRONIC ACID [Suspect]
     Active Substance: ZOLEDRONIC ACID
     Indication: Osteoporosis
     Route: 065
     Dates: start: 20230620, end: 20230620
  2. ZOLEDRONIC ACID [Suspect]
     Active Substance: ZOLEDRONIC ACID
     Route: 065
     Dates: start: 20240617, end: 20240617

REACTIONS (5)
  - Surgery [Unknown]
  - Malaise [Unknown]
  - Gait disturbance [Unknown]
  - Abdominal distension [Unknown]
  - Insomnia [Unknown]

NARRATIVE: CASE EVENT DATE: 20250703
